FAERS Safety Report 21622421 (Version 2)
Quarter: 2023Q1

REPORT INFORMATION
  Report Type: Spontaneous
  Country: US (occurrence: US)
  Receive Date: 20221121
  Receipt Date: 20230324
  Transmission Date: 20230417
  Serious: No
  Sender: FDA-Public Use
  Company Number: US-VERTEX PHARMACEUTICALS-2022-017314

PATIENT
  Age: 48 Year
  Sex: Female

DRUGS (2)
  1. TRIKAFTA [Suspect]
     Active Substance: ELEXACAFTOR\IVACAFTOR\TEZACAFTOR
     Indication: Cystic fibrosis
     Dosage: 2 ORANGE TABS (AM) AND 1 BLUE TAB (PM)
     Route: 048
     Dates: start: 20200325
  2. PROTONIX [Concomitant]
     Active Substance: PANTOPRAZOLE SODIUM

REACTIONS (10)
  - Joint injury [Unknown]
  - Hypermobility syndrome [Unknown]
  - Tendon injury [Unknown]
  - Joint dislocation [Not Recovered/Not Resolved]
  - Hiatus hernia [Unknown]
  - Product dose omission issue [Recovered/Resolved]
  - Panic attack [Recovering/Resolving]
  - Crying [Recovered/Resolved]
  - Dyspnoea [Recovered/Resolved]
  - Feeling abnormal [Recovered/Resolved]

NARRATIVE: CASE EVENT DATE: 20221022
